FAERS Safety Report 7740178-5 (Version None)
Quarter: 2011Q3

REPORT INFORMATION
  Report Type: 
  Country: None (occurrence: None)
  Receive Date: 20110909
  Receipt Date: 20110906
  Transmission Date: 20111222
  Serious: Yes (Death)
  Sender: FDA-Public Use
  Company Number: AU-B.I. PHARMACEUTICALS,INC./RIDGEFIELD-2011-AU-01030AU

PATIENT
  Sex: Male

DRUGS (4)
  1. LIPITOR [Concomitant]
     Dosage: 80 MG
     Dates: start: 20110201
  2. PRADAXA [Suspect]
  3. METOPROLOL TARTRATE [Concomitant]
     Dosage: 50 MG
     Dates: start: 20110201
  4. OMEPRAZOLE [Concomitant]
     Dosage: 20 MG

REACTIONS (1)
  - CARDIAC ARREST [None]
